FAERS Safety Report 25779536 (Version 1)
Quarter: 2025Q3

REPORT INFORMATION
  Report Type: Spontaneous
  Country: JP (occurrence: JP)
  Receive Date: 20250909
  Receipt Date: 20250909
  Transmission Date: 20251021
  Serious: Yes (Hospitalization)
  Sender: INCYTE
  Company Number: JP-002147023-NVSJ2025JP008989

PATIENT
  Age: 5 Decade

DRUGS (2)
  1. RUXOLITINIB [Suspect]
     Active Substance: RUXOLITINIB
     Indication: Acute graft versus host disease
  2. RUXOLITINIB [Suspect]
     Active Substance: RUXOLITINIB

REACTIONS (1)
  - Blood bilirubin increased [Not Recovered/Not Resolved]
